FAERS Safety Report 5709225-6 (Version None)
Quarter: 2008Q2

REPORT INFORMATION
  Report Type: 
  Country: None (occurrence: None)
  Receive Date: 20080418
  Receipt Date: 20080409
  Transmission Date: 20081010
  Serious: Yes (Hospitalization)
  Sender: FDA-Public Use
  Company Number: PHRM2008FR00952

PATIENT
  Age: 80 Year
  Sex: Female
  Weight: 60 kg

DRUGS (9)
  1. STALEVO 100 [Suspect]
     Dosage: 200/150/37.5 MG, 7QD
     Route: 048
  2. MODOPAR [Concomitant]
     Dosage: 25/100, QD
     Route: 048
  3. INIPOMP [Concomitant]
     Route: 048
  4. FUMAFER [Concomitant]
  5. SINEMET [Concomitant]
     Dosage: 50/500 MG/DAY
     Route: 048
  6. EXELON [Concomitant]
     Dosage: 3 MG, BID
     Route: 048
  7. LEPONEX [Concomitant]
     Dosage: 12.5 MG, QD
     Route: 048
  8. PLAVIX [Concomitant]
     Dosage: 1 DF, QD
     Route: 048
  9. DEROXAT [Concomitant]
     Dosage: 1 DF, QD
     Route: 048

REACTIONS (2)
  - NAUSEA [None]
  - OESOPHAGEAL PAIN [None]
